FAERS Safety Report 8109459-X (Version None)
Quarter: 2012Q1

REPORT INFORMATION
  Report Type: 
  Country: None (occurrence: None)
  Receive Date: 20120202
  Receipt Date: 20120110
  Transmission Date: 20120608
  Serious: No
  Sender: FDA-Public Use
  Company Number: US-AMGEN-USASP2012001725

PATIENT
  Age: 31 Year
  Sex: Female

DRUGS (1)
  1. ENBREL [Suspect]
     Indication: RHEUMATOID ARTHRITIS
     Dosage: 25 MG, 2 TIMES/WK
     Dates: start: 20111020

REACTIONS (6)
  - INFLUENZA LIKE ILLNESS [None]
  - MYALGIA [None]
  - ASTHENIA [None]
  - HEADACHE [None]
  - BONE PAIN [None]
  - OROPHARYNGEAL PAIN [None]
